FAERS Safety Report 24701901 (Version 1)
Quarter: 2024Q4

REPORT INFORMATION
  Report Type: Spontaneous
  Country: US (occurrence: US)
  Receive Date: 20241205
  Receipt Date: 20241205
  Transmission Date: 20250115
  Serious: No
  Sender: SANOFI AVENTIS
  Company Number: US-SA-2024SA357879

PATIENT
  Age: 59 Year
  Sex: Female

DRUGS (7)
  1. DUPIXENT [Suspect]
     Active Substance: DUPILUMAB
     Indication: Asthma
     Dosage: 600 MG, 1X
     Route: 058
     Dates: start: 20240612, end: 20240612
  2. DUPIXENT [Suspect]
     Active Substance: DUPILUMAB
     Dosage: 300 MG, QOW
     Route: 058
  3. FLUTICASONE [Concomitant]
     Active Substance: FLUTICASONE
  4. SINGULAIR [Concomitant]
     Active Substance: MONTELUKAST SODIUM
  5. TRELEGY ELLIPTA [Concomitant]
     Active Substance: FLUTICASONE FUROATE\UMECLIDINIUM BROMIDE\VILANTEROL TRIFENATATE
  6. AIRSUPRA [Concomitant]
     Active Substance: ALBUTEROL SULFATE\BUDESONIDE
  7. ALBUTEROL [Concomitant]
     Active Substance: ALBUTEROL

REACTIONS (5)
  - Influenza [Unknown]
  - Cough [Unknown]
  - Pyrexia [Unknown]
  - Headache [Unknown]
  - Chills [Unknown]

NARRATIVE: CASE EVENT DATE: 20241124
